FAERS Safety Report 7729890-1 (Version None)
Quarter: 2011Q3

REPORT INFORMATION
  Report Type: 
  Country: None (occurrence: None)
  Receive Date: 20110906
  Receipt Date: 20110901
  Transmission Date: 20111222
  Serious: Yes (Death, Life-Threatening, Hospitalization)
  Sender: FDA-Public Use
  Company Number: US-AMGEN-US233092

PATIENT
  Age: 79 Year
  Sex: Female
  Weight: 49.9 kg

DRUGS (23)
  1. MEGESTROL ACETATE [Concomitant]
     Dosage: 5 ML, QD
     Route: 048
     Dates: start: 20070205, end: 20070708
  2. POTASSIUM [Concomitant]
     Dosage: 20 MEQ, QD
     Route: 048
     Dates: start: 20070409, end: 20070708
  3. DOCETAXEL [Concomitant]
     Dosage: 120 MG, Q3WK
     Route: 042
     Dates: start: 20070129, end: 20070625
  4. ASCORBIC ACID [Concomitant]
     Dosage: 1000 MG, QD
     Route: 048
     Dates: start: 20070101, end: 20070708
  5. CHLORHEXIDINE GLUCONATE [Concomitant]
     Dosage: UNK UNK, UNK
     Route: 048
     Dates: start: 20070101, end: 20070708
  6. DOLASETRON MESYLATE [Concomitant]
     Dosage: 200 MG, QD
     Route: 048
     Dates: start: 20070205, end: 20070708
  7. CALCIUM CARBONATE [Concomitant]
     Dosage: 1000 MG, QD
     Route: 048
     Dates: start: 20070101, end: 20070708
  8. CLOTRIMAZOLE [Concomitant]
     Dosage: UNK UNK, QID
     Route: 048
     Dates: start: 20070207, end: 20070708
  9. FUROSEMIDE [Concomitant]
     Dosage: 40 MG, QD
     Route: 048
     Dates: start: 20070101, end: 20070708
  10. TOCOPHEROL CONCENTRATE CAP [Concomitant]
     Dosage: 400 IU, QD
     Route: 048
     Dates: start: 20070101, end: 20070708
  11. OXYCODONE HCL [Concomitant]
     Dosage: 40 MG, QD
     Route: 048
     Dates: start: 20070101, end: 20070708
  12. GLUCOSAMINE [Concomitant]
     Dosage: 750 MG, QD
     Route: 048
     Dates: start: 20070101, end: 20070708
  13. MOMETASONE FUROATE MONOHYDRATE [Concomitant]
     Dosage: 200 MUG, QD
     Route: 048
     Dates: start: 20070101, end: 20070708
  14. CHONDROITIN [Concomitant]
     Dosage: 600 MG, QD
     Route: 048
     Dates: start: 20070101, end: 20070708
  15. COENZYME Q10 [Concomitant]
     Dosage: 150 MG, QD
     Route: 048
     Dates: start: 20070101, end: 20070708
  16. PANITUMUMAB [Suspect]
     Indication: SQUAMOUS CELL CARCINOMA
     Dosage: 428 MG, Q3WK
     Route: 042
     Dates: start: 20070129, end: 20070625
  17. CISPLATIN [Concomitant]
     Dosage: 120 MG, Q3WK
     Route: 042
     Dates: start: 20070129, end: 20070625
  18. ACETAMINOPHEN AND HYDROCODONE BITARTRATE [Concomitant]
     Dosage: 7.5 MG, PRN
     Route: 048
     Dates: start: 20070101, end: 20070708
  19. ESOMEPRAZOLE MAGNESIUM [Concomitant]
     Dosage: 40 MG, QD
     Route: 048
     Dates: start: 20070101, end: 20070708
  20. ONDANSERTRON HYDROCHLORIDE [Concomitant]
     Dosage: 16 MG, PRN
     Route: 048
     Dates: start: 20070219, end: 20070708
  21. RAMELTEON [Concomitant]
     Dosage: 8 MG, QD
     Route: 048
     Dates: start: 20070326, end: 20070708
  22. MULTI-VITAMINS [Concomitant]
     Dosage: UNK UNK, QD
     Route: 048
     Dates: start: 20070101, end: 20070708
  23. MAALOX [Concomitant]
     Dosage: 1600 MG, QD
     Route: 048
     Dates: start: 20070604, end: 20070708

REACTIONS (7)
  - HYPOTENSION [None]
  - HYPOKALAEMIA [None]
  - HYPOMAGNESAEMIA [None]
  - ATRIAL FIBRILLATION [None]
  - SEPSIS [None]
  - THROMBOCYTOPENIA [None]
  - RENAL FAILURE ACUTE [None]
